FAERS Safety Report 15808333 (Version 1)
Quarter: 2019Q1

REPORT INFORMATION
  Report Type: Report from Study
  Country: US (occurrence: US)
  Receive Date: 20190110
  Receipt Date: 20190110
  Transmission Date: 20190417
  Serious: Yes (Other)
  Sender: FDA-Public Use
  Company Number: US-ACTELION-A-US2019-184628

PATIENT
  Age: 59 Year
  Sex: Female

DRUGS (4)
  1. FISH OIL OMEGA 3 [Concomitant]
     Active Substance: FISH OIL
     Dosage: 1000 MG, 2 CAPSULES QD
  2. ROSUVASTATIN. [Concomitant]
     Active Substance: ROSUVASTATIN
     Dosage: 5 MG, QPM
  3. BOTOX [Concomitant]
     Active Substance: ONABOTULINUMTOXINA
     Dosage: 200 UNITS, Q 90 D
     Route: 030
  4. OPSUMIT [Suspect]
     Active Substance: MACITENTAN
     Indication: PULMONARY ARTERIAL HYPERTENSION
     Dosage: 10 MG, QD
     Route: 048
     Dates: start: 20160715

REACTIONS (1)
  - Gastrectomy [Unknown]
